FAERS Safety Report 8184634-7 (Version None)
Quarter: 2012Q1

REPORT INFORMATION
  Report Type: 
  Country: None (occurrence: None)
  Receive Date: 20120305
  Receipt Date: 20120224
  Transmission Date: 20120608
  Serious: Yes (Death, Hospitalization, Other)
  Sender: FDA-Public Use
  Company Number: FR-PFIZER INC-2012006700

PATIENT
  Age: 59 Year
  Sex: Male

DRUGS (5)
  1. SINTROM [Suspect]
     Indication: ARRHYTHMIA
     Dosage: UNK
     Dates: end: 20080102
  2. LEVOLEUCOVORIN CALCIUM [Suspect]
     Indication: COLORECTAL CANCER METASTATIC
     Dosage: 200 MG/M2, CYCLIC
     Route: 042
     Dates: start: 20071218, end: 20080201
  3. ERBITUX [Suspect]
     Indication: COLORECTAL CANCER METASTATIC
     Dosage: 400 MG/M2 AND THEN 250 MG/M2, CYCLIC
     Route: 042
     Dates: start: 20071218, end: 20080201
  4. IRINOTECAN HCL [Suspect]
     Indication: COLORECTAL CANCER METASTATIC
     Dosage: 260 MG/M2 OR 180 MG/M2, CYCLIC
     Route: 042
     Dates: start: 20071218, end: 20080201
  5. FLUOROURACIL [Suspect]
     Indication: COLORECTAL CANCER METASTATIC
     Dosage: 400 MG/M2, CYCLIC
     Route: 042
     Dates: start: 20071218, end: 20080201

REACTIONS (3)
  - SUBILEUS [None]
  - INTERNATIONAL NORMALISED RATIO INCREASED [None]
  - DRUG ERUPTION [None]
